FAERS Safety Report 7354025-7 (Version None)
Quarter: 2011Q1

REPORT INFORMATION
  Report Type: 
  Country: None (occurrence: None)
  Receive Date: 20110315
  Receipt Date: 20110308
  Transmission Date: 20110831
  Serious: Yes (Hospitalization, Other)
  Sender: FDA-Public Use
  Company Number: US-US-EMD SERONO, INC.-7032701

PATIENT
  Sex: Female

DRUGS (2)
  1. REBIF [Suspect]
     Indication: MULTIPLE SCLEROSIS
     Route: 058
     Dates: start: 20100315, end: 20101101
  2. REBIF [Suspect]
     Route: 058

REACTIONS (9)
  - BENIGN NEOPLASM [None]
  - APPENDICITIS [None]
  - ARTHRALGIA [None]
  - INJECTION SITE ERYTHEMA [None]
  - HERNIA [None]
  - RENAL CYST [None]
  - HEPATIC NEOPLASM [None]
  - INTESTINAL PROLAPSE [None]
  - HYPERHIDROSIS [None]
